FAERS Safety Report 17271898 (Version 1)
Quarter: 2020Q1

REPORT INFORMATION
  Report Type: Other
  Country: AU (occurrence: AU)
  Receive Date: 20200115
  Receipt Date: 20200115
  Transmission Date: 20200409
  Serious: Yes (Death)
  Sender: FDA-Public Use
  Company Number: AU-SUNRISE PHARMACEUTICAL, INC.-2079022

PATIENT
  Age: 84 Year
  Sex: Male

DRUGS (1)
  1. POLYETHYLENE GLYCOL 3350. [Suspect]
     Active Substance: POLYETHYLENE GLYCOL 3350
     Indication: PRODUCT USED FOR UNKNOWN INDICATION
     Route: 065

REACTIONS (4)
  - Compartment syndrome [Fatal]
  - Hypotension [Fatal]
  - Urticaria [Fatal]
  - Tachycardia [Fatal]
